FAERS Safety Report 5886074-X (Version None)
Quarter: 2008Q3

REPORT INFORMATION
  Report Type: 
  Country: None (occurrence: None)
  Receive Date: 20080917
  Receipt Date: 20080905
  Transmission Date: 20090109
  Serious: Yes (Hospitalization)
  Sender: FDA-Public Use
  Company Number: ES-ROCHE-585125

PATIENT
  Sex: Male

DRUGS (4)
  1. MYCOPHENOLATE MOFETIL [Suspect]
     Indication: RENAL TRANSPLANT
     Route: 048
     Dates: start: 20000229, end: 20010202
  2. ERL080A [Suspect]
     Indication: RENAL TRANSPLANT
     Dosage: DRUG GIVEN WAS BLINDED ERL080A
     Route: 048
     Dates: start: 20000229, end: 20010202
  3. PREDNISONE TAB [Suspect]
     Indication: IMMUNOSUPPRESSION
     Route: 065
  4. NEORAL [Suspect]
     Indication: IMMUNOSUPPRESSION
     Route: 065

REACTIONS (2)
  - ABDOMINAL PAIN UPPER [None]
  - GASTRIC CANCER [None]
